FAERS Safety Report 7688935-8 (Version None)
Quarter: 2011Q3

REPORT INFORMATION
  Report Type: 
  Country: None (occurrence: None)
  Receive Date: 20110817
  Receipt Date: 20110809
  Transmission Date: 20111222
  Serious: Yes (Other)
  Sender: FDA-Public Use
  Company Number: PHHY2011BR72769

PATIENT
  Sex: Male

DRUGS (1)
  1. EXFORGE [Suspect]
     Dosage: 320 MG VALSARTAN AND 5 MG AMLODIPINE

REACTIONS (3)
  - HEADACHE [None]
  - EYE PAIN [None]
  - DIABETES MELLITUS [None]
